FAERS Safety Report 8525951-8 (Version None)
Quarter: 2012Q3

REPORT INFORMATION
  Report Type: 
  Country: None (occurrence: None)
  Receive Date: 20120720
  Receipt Date: 20120710
  Transmission Date: 20120928
  Serious: Yes (Hospitalization)
  Sender: FDA-Public Use
  Company Number: JP-FRI-1000036987

PATIENT
  Sex: Female

DRUGS (7)
  1. ARICEPT OD [Concomitant]
     Indication: DEMENTIA ALZHEIMER'S TYPE
     Dosage: 5 MG
     Route: 048
     Dates: start: 20061212
  2. MEMANTINE HCL [Suspect]
     Indication: DEMENTIA ALZHEIMER'S TYPE
     Dosage: 5 MG
     Route: 048
     Dates: start: 20120418, end: 20120501
  3. MEMANTINE HCL [Suspect]
     Dosage: 10 MG
     Route: 048
     Dates: start: 20120502, end: 20120515
  4. YOKUKANSAN [Concomitant]
     Indication: DEMENTIA ALZHEIMER'S TYPE
     Dosage: 5 G
     Route: 048
     Dates: start: 20110713
  5. MEMANTINE HCL [Suspect]
     Dosage: 15 MG
     Route: 048
     Dates: start: 20120516, end: 20120529
  6. KETAS [Concomitant]
     Indication: CEREBRAL INFARCTION
     Dosage: 30 MG
     Route: 048
     Dates: start: 20090113
  7. MEMANTINE HCL [Suspect]
     Dosage: 20 MG
     Route: 048
     Dates: start: 20120530, end: 20120607

REACTIONS (3)
  - DIZZINESS [None]
  - FEELING ABNORMAL [None]
  - CHEST DISCOMFORT [None]
